FAERS Safety Report 24947920 (Version 1)
Quarter: 2025Q1

REPORT INFORMATION
  Report Type: Report from Study
  Country: CA (occurrence: CA)
  Receive Date: 20250210
  Receipt Date: 20250210
  Transmission Date: 20250409
  Serious: Yes (Other)
  Sender: AUROBINDO
  Company Number: CA-AUROBINDO-AUR-APL-2024-043411

PATIENT
  Age: 52 Year
  Sex: Female

DRUGS (8)
  1. DULOXETINE [Suspect]
     Active Substance: DULOXETINE
     Indication: Neuropathy peripheral
     Dosage: 30 MILLIGRAM, ONCE A DAY,FOR ONLY ONE WEEK
     Route: 065
  2. PACLITAXEL [Suspect]
     Active Substance: PACLITAXEL
     Indication: Triple negative breast cancer
     Route: 065
  3. PACLITAXEL [Suspect]
     Active Substance: PACLITAXEL
     Indication: Metastases to liver
  4. PACLITAXEL [Suspect]
     Active Substance: PACLITAXEL
     Indication: Breast cancer stage IV
  5. PERTUZUMAB [Suspect]
     Active Substance: PERTUZUMAB
     Indication: Triple negative breast cancer
     Route: 065
  6. PERTUZUMAB [Suspect]
     Active Substance: PERTUZUMAB
     Indication: Breast cancer stage IV
  7. TRASTUZUMAB [Concomitant]
     Active Substance: TRASTUZUMAB
     Indication: Triple negative breast cancer
     Route: 065
  8. TRASTUZUMAB [Concomitant]
     Active Substance: TRASTUZUMAB
     Indication: Breast cancer stage IV

REACTIONS (2)
  - Hyperhidrosis [Recovering/Resolving]
  - Neuropathy peripheral [Recovering/Resolving]
